FAERS Safety Report 8072830-9 (Version None)
Quarter: 2012Q1

REPORT INFORMATION
  Report Type: 
  Country: None (occurrence: None)
  Receive Date: 20120126
  Receipt Date: 20120118
  Transmission Date: 20120608
  Serious: Yes (Disabling, Other)
  Sender: FDA-Public Use
  Company Number: GB-ABBOTT-12P-167-0894987-00

PATIENT
  Sex: Female
  Weight: 72 kg

DRUGS (4)
  1. STEROIDS [Concomitant]
     Indication: RHEUMATOID ARTHRITIS
  2. HUMIRA [Suspect]
     Route: 058
     Dates: start: 20110829
  3. STEROIDS [Concomitant]
  4. HUMIRA [Suspect]
     Indication: RHEUMATOID ARTHRITIS
     Route: 058

REACTIONS (4)
  - KERATITIS [None]
  - BLINDNESS [None]
  - IRIDOCYCLITIS [None]
  - ARTHROPATHY [None]
